FAERS Safety Report 10464009 (Version 3)
Quarter: 2014Q4

REPORT INFORMATION
  Report Type: Spontaneous
  Country: JP (occurrence: JP)
  Receive Date: 20140919
  Receipt Date: 20141027
  Transmission Date: 20150528
  Serious: Yes (Hospitalization)
  Sender: FDA-Public Use
  Company Number: PHHY2014JP121582

PATIENT
  Age: 39 Year
  Sex: Male

DRUGS (3)
  1. INFLIXIMAB [Concomitant]
     Active Substance: INFLIXIMAB
     Indication: PSORIATIC ARTHROPATHY
  2. NEORAL [Suspect]
     Active Substance: CYCLOSPORINE
     Indication: PSORIATIC ARTHROPATHY
     Dosage: 300 MG, QD
     Route: 048
     Dates: start: 199912, end: 20120829
  3. NEORAL [Suspect]
     Active Substance: CYCLOSPORINE
     Indication: PSORIASIS

REACTIONS (6)
  - Proteinuria [Recovered/Resolved]
  - Nephrosclerosis [Recovered/Resolved]
  - Focal segmental glomerulosclerosis [Recovered/Resolved]
  - Nephrotic syndrome [Recovered/Resolved]
  - Arteriosclerosis [Recovered/Resolved]
  - Oedema peripheral [Unknown]

NARRATIVE: CASE EVENT DATE: 20130917
